FAERS Safety Report 8285527-7 (Version None)
Quarter: 2012Q2

REPORT INFORMATION
  Report Type: 
  Country: None (occurrence: None)
  Receive Date: 20120413
  Receipt Date: 20120220
  Transmission Date: 20120825
  Serious: No
  Sender: FDA-Public Use
  Company Number: US-ASTRAZENECA-2011SE12870

PATIENT
  Age: 52 Year
  Sex: Female

DRUGS (2)
  1. NEXIUM [Suspect]
     Dosage: ONE A DAY
     Route: 048
  2. SEROQUEL XR [Suspect]
     Indication: MENTAL DISORDER
     Route: 048

REACTIONS (2)
  - DRUG EFFECT DECREASED [None]
  - NASOPHARYNGITIS [None]
